FAERS Safety Report 8495125-8 (Version None)
Quarter: 2012Q3

REPORT INFORMATION
  Report Type: 
  Country: None (occurrence: None)
  Receive Date: 20120702
  Receipt Date: 20120702
  Transmission Date: 20120928
  Serious: Yes (Hospitalization)
  Sender: FDA-Public Use
  Company Number: None

PATIENT
  Sex: Male
  Weight: 98.5 kg

DRUGS (1)
  1. CYTARABINE [Suspect]
     Dosage: 39600 MG
     Dates: end: 20120610

REACTIONS (5)
  - COUGH [None]
  - NEUTROPENIA [None]
  - PNEUMONIA [None]
  - LEGIONELLA INFECTION [None]
  - PYREXIA [None]
